FAERS Safety Report 9746542 (Version 2)
Quarter: 2013Q4

REPORT INFORMATION
  Report Type: Report from Study
  Country: BR (occurrence: BR)
  Receive Date: 20131211
  Receipt Date: 20131211
  Transmission Date: 20140711
  Serious: Yes (Hospitalization, Other)
  Sender: FDA-Public Use
  Company Number: PHHY2013BR128114

PATIENT
  Age: 84 Year
  Sex: Female
  Weight: 75 kg

DRUGS (2)
  1. TEGRETOL [Suspect]
     Indication: CEREBRAL ISCHAEMIA
     Dosage: 1 DF, QHS
  2. TEGRETOL [Suspect]
     Indication: OFF LABEL USE

REACTIONS (4)
  - Femur fracture [Recovering/Resolving]
  - Vertigo positional [Recovered/Resolved]
  - Fall [Recovered/Resolved]
  - Blood pressure abnormal [Recovering/Resolving]
